FAERS Safety Report 13460043 (Version 2)
Quarter: 2018Q2

REPORT INFORMATION
  Report Type: Spontaneous
  Country: US (occurrence: US)
  Receive Date: 20170420
  Receipt Date: 20180423
  Transmission Date: 20180711
  Serious: Yes (Other)
  Sender: FDA-Public Use
  Company Number: US-TEVA-740902ACC

PATIENT
  Sex: Female

DRUGS (7)
  1. ZOLPIDEM TARTRATE. [Suspect]
     Active Substance: ZOLPIDEM TARTRATE
     Indication: INSOMNIA
     Route: 065
     Dates: start: 2007, end: 201704
  2. CYMBALTA [Concomitant]
     Active Substance: DULOXETINE HYDROCHLORIDE
  3. LOSARTAN. [Concomitant]
     Active Substance: LOSARTAN
  4. CRESTOR [Concomitant]
     Active Substance: ROSUVASTATIN CALCIUM
  5. LITHIUM. [Concomitant]
     Active Substance: LITHIUM
  6. DILTIAZEM. [Concomitant]
     Active Substance: DILTIAZEM
  7. EPLERENONE. [Concomitant]
     Active Substance: EPLERENONE

REACTIONS (4)
  - Insomnia [Unknown]
  - Somnolence [Unknown]
  - Chest discomfort [Unknown]
  - Drug dependence [Unknown]

NARRATIVE: CASE EVENT DATE: 201702
